FAERS Safety Report 5255427-5 (Version None)
Quarter: 2007Q1

REPORT INFORMATION
  Report Type: 
  Country: None (occurrence: None)
  Receive Date: 20070228
  Receipt Date: 20070212
  Transmission Date: 20070707
  Serious: Yes (Life-Threatening, Hospitalization)
  Sender: FDA-Public Use
  Company Number: DSA_29456_2007

PATIENT
  Age: 13 Year
  Sex: Female

DRUGS (1)
  1. MONOTILDIEM [Suspect]
     Dosage: 14 TAB ONCE PO
     Route: 048
     Dates: start: 20060508, end: 20060508

REACTIONS (5)
  - CONVULSION [None]
  - HALLUCINATION, VISUAL [None]
  - INTENTIONAL OVERDOSE [None]
  - RENAL FAILURE ACUTE [None]
  - SUICIDE ATTEMPT [None]
